FAERS Safety Report 8313911-1 (Version None)
Quarter: 2012Q2

REPORT INFORMATION
  Report Type: 
  Country: None (occurrence: None)
  Receive Date: 20120426
  Receipt Date: 20120426
  Transmission Date: 20120825
  Serious: No
  Sender: FDA-Public Use
  Company Number: None

PATIENT
  Age: 35 Year
  Sex: Female
  Weight: 50.802 kg

DRUGS (2)
  1. SOLGAR METHYLCOBALAMIN B12 [Concomitant]
  2. SOLGAR METHYLCOBALAMIN B12 [Suspect]
     Dosage: 1 TO 2
     Route: 060
     Dates: start: 20120417, end: 20120425

REACTIONS (3)
  - ALTERED VISUAL DEPTH PERCEPTION [None]
  - FEELING COLD [None]
  - VISUAL IMPAIRMENT [None]
